FAERS Safety Report 9303891 (Version 1)
Quarter: 2013Q2

REPORT INFORMATION
  Report Type: Spontaneous
  Country: BR (occurrence: BR)
  Receive Date: 20130522
  Receipt Date: 20130522
  Transmission Date: 20140414
  Serious: Yes (Hospitalization, Other)
  Sender: FDA-Public Use
  Company Number: BR-ASTRAZENECA-2013SE34663

PATIENT
  Age: 56 Year
  Sex: Male
  Weight: 89 kg

DRUGS (8)
  1. ATENOLOL [Suspect]
     Indication: MYOCARDIAL INFARCTION
     Route: 065
     Dates: start: 2002
  2. ATENOLOL [Suspect]
     Indication: HYPERTENSION
     Route: 065
     Dates: start: 2002
  3. ATACAND [Suspect]
     Indication: MYOCARDIAL INFARCTION
     Route: 048
     Dates: start: 2002, end: 2008
  4. ATACAND [Suspect]
     Indication: HYPERTENSION
     Route: 048
     Dates: start: 2002, end: 2008
  5. ATACAND [Suspect]
     Indication: MYOCARDIAL INFARCTION
     Route: 048
     Dates: start: 2008
  6. ATACAND [Suspect]
     Indication: HYPERTENSION
     Route: 048
     Dates: start: 2008
  7. ASA [Concomitant]
     Indication: MYOCARDIAL INFARCTION
     Dates: start: 2002, end: 20130508
  8. ASA [Concomitant]
     Indication: MYOCARDIAL INFARCTION
     Dates: start: 20130509

REACTIONS (5)
  - Coronary artery occlusion [Recovered/Resolved]
  - Chest pain [Recovered/Resolved]
  - Hypotension [Recovered/Resolved]
  - Dizziness [Recovered/Resolved]
  - Off label use [Not Recovered/Not Resolved]
